FAERS Safety Report 10082844 (Version 5)
Quarter: 2017Q4

REPORT INFORMATION
  Report Type: Report from Study
  Country: US (occurrence: US)
  Receive Date: 20140416
  Receipt Date: 20171120
  Transmission Date: 20180320
  Serious: Yes (Other)
  Sender: FDA-Public Use
  Company Number: PHEH2014US007385

PATIENT
  Age: 52 Year
  Sex: Female

DRUGS (4)
  1. TRILEPTAL [Suspect]
     Active Substance: OXCARBAZEPINE
     Indication: SEIZURE
     Route: 048
  2. TRAVATAN Z [Suspect]
     Active Substance: TRAVOPROST
     Indication: PRODUCT USED FOR UNKNOWN INDICATION
     Route: 065
  3. TRILEPTAL [Suspect]
     Active Substance: OXCARBAZEPINE
     Dosage: UNK
     Route: 065
  4. TEGRETOL [Suspect]
     Active Substance: CARBAMAZEPINE
     Indication: SEIZURE
     Dosage: UNK
     Route: 048
     Dates: start: 2005

REACTIONS (13)
  - Cerebrovascular accident [Unknown]
  - Condition aggravated [Unknown]
  - Seizure [Unknown]
  - Feeling abnormal [Unknown]
  - Seizure [Recovered/Resolved]
  - Loss of consciousness [Unknown]
  - Hepatitis C [Unknown]
  - Stress [Unknown]
  - Brain injury [Unknown]
  - Brain abscess [Unknown]
  - Epilepsy [Unknown]
  - Drug ineffective [Unknown]
  - Blood sodium decreased [Unknown]

NARRATIVE: CASE EVENT DATE: 200504
